FAERS Safety Report 18776737 (Version 1)
Quarter: 2021Q1

REPORT INFORMATION
  Report Type: Spontaneous
  Country: US (occurrence: US)
  Receive Date: 20210122
  Receipt Date: 20210122
  Transmission Date: 20210419
  Serious: Yes (Hospitalization)
  Sender: FDA-Public Use
  Company Number: US-ROCHE-2752660

PATIENT
  Sex: Male

DRUGS (22)
  1. MONTELUKAST [Concomitant]
     Active Substance: MONTELUKAST SODIUM
  2. POTASSIUM CITRATE. [Concomitant]
     Active Substance: POTASSIUM CITRATE
  3. SPIRIVA [Concomitant]
     Active Substance: TIOTROPIUM BROMIDE MONOHYDRATE
  4. VITAMIN C [Concomitant]
     Active Substance: ASCORBIC ACID
  5. WIXELA INHUB [Concomitant]
     Active Substance: FLUTICASONE PROPIONATE\SALMETEROL XINAFOATE
  6. DEXAMETHASONE. [Concomitant]
     Active Substance: DEXAMETHASONE
  7. FENOFIBRATE. [Concomitant]
     Active Substance: FENOFIBRATE
  8. IRBESARTAN. [Concomitant]
     Active Substance: IRBESARTAN
  9. PIOGLITAZONE. [Concomitant]
     Active Substance: PIOGLITAZONE
  10. ATORVASTATIN [Concomitant]
     Active Substance: ATORVASTATIN
  11. XOLAIR [Suspect]
     Active Substance: OMALIZUMAB
     Indication: ASTHMA
     Dosage: 75MG/0.5ML SYRINGE
     Route: 058
     Dates: start: 20171207
  12. ALBUTEROL. [Concomitant]
     Active Substance: ALBUTEROL
  13. XOLAIR [Suspect]
     Active Substance: OMALIZUMAB
     Dosage: 150MG/0.5ML
     Route: 058
     Dates: start: 20171207
  14. HYDROCHLOROTHIAZIDE. [Concomitant]
     Active Substance: HYDROCHLOROTHIAZIDE
  15. NYSTATIN. [Concomitant]
     Active Substance: NYSTATIN
  16. ALLOPURINOL. [Concomitant]
     Active Substance: ALLOPURINOL
  17. JANUVIA [Concomitant]
     Active Substance: SITAGLIPTIN PHOSPHATE
  18. METFORMIN [Concomitant]
     Active Substance: METFORMIN HYDROCHLORIDE
  19. ZINC SULFATE. [Concomitant]
     Active Substance: ZINC SULFATE
  20. DESLORATADINE. [Concomitant]
     Active Substance: DESLORATADINE
  21. MAGNESIUM [Concomitant]
     Active Substance: MAGNESIUM
  22. CLARITHROMYCIN. [Concomitant]
     Active Substance: CLARITHROMYCIN

REACTIONS (1)
  - COVID-19 pneumonia [Unknown]
